FAERS Safety Report 19325824 (Version 2)
Quarter: 2022Q2

REPORT INFORMATION
  Report Type: Spontaneous
  Country: US (occurrence: US)
  Receive Date: 20210528
  Receipt Date: 20220628
  Transmission Date: 20220720
  Serious: Yes (Other)
  Sender: FDA-Public Use
  Company Number: US-PFIZER INC-2021257483

PATIENT
  Age: 74 Year
  Sex: Female

DRUGS (36)
  1. IBRANCE [Suspect]
     Active Substance: PALBOCICLIB
     Indication: Breast cancer female
     Dosage: 125 MG, CYCLIC (ONCE DAILY DAYS 1 THROUGH 21 FOLLOWED BY 7 DAY REST)
     Route: 048
     Dates: start: 20210201
  2. IBRANCE [Suspect]
     Active Substance: PALBOCICLIB
     Dosage: 100 MG
     Dates: start: 202103
  3. IBRANCE [Suspect]
     Active Substance: PALBOCICLIB
     Dosage: 125 MG
     Dates: start: 202202
  4. AMBIEN [Concomitant]
     Active Substance: ZOLPIDEM TARTRATE
     Dosage: 10 MG
  5. NAMENDA [Concomitant]
     Active Substance: MEMANTINE HYDROCHLORIDE
     Dosage: 10 MG
  6. IMODIUM [Concomitant]
     Active Substance: LOPERAMIDE HYDROCHLORIDE
     Dosage: 2 MG
  7. ONDANSETRON HCL [Concomitant]
     Active Substance: ONDANSETRON HYDROCHLORIDE
     Dosage: 4 MG
  8. ZETIA [Concomitant]
     Active Substance: EZETIMIBE
     Dosage: 10 MG
  9. OMEPRAZOLE [Concomitant]
     Active Substance: OMEPRAZOLE
     Dosage: 10 MG
  10. GABAPENTIN [Concomitant]
     Active Substance: GABAPENTIN
     Dosage: 100 MG
  11. TYLENOL [Concomitant]
     Active Substance: ACETAMINOPHEN
     Dosage: 325 MG
  12. NYSTATIN [Concomitant]
     Active Substance: NYSTATIN
     Dosage: UNK (100000/ML ORAL SUSP)
  13. LISINOPRIL [Concomitant]
     Active Substance: LISINOPRIL
     Dosage: 10 MG
  14. MYLANTA GAS MINIS [Concomitant]
     Dosage: 42 MG
  15. B12 ACTIVE [Concomitant]
     Dosage: 1000 UG
  16. VITAMIN D3 [Concomitant]
     Active Substance: CHOLECALCIFEROL
     Dosage: 10 UG
  17. CALCIUM\VITAMIN D [Concomitant]
     Active Substance: CALCIUM\VITAMIN D
     Dosage: UNK
  18. OMEGA-3 FATTY ACIDS [Concomitant]
     Active Substance: OMEGA-3 FATTY ACIDS
     Dosage: 100 MG
  19. ARICEPT [Concomitant]
     Active Substance: DONEPEZIL HYDROCHLORIDE
     Dosage: 10 MG
  20. VITAMIN B COMPLEX [Concomitant]
     Active Substance: CYANOCOBALAMIN\DEXPANTHENOL\NIACINAMIDE\PYRIDOXINE HYDROCHLORIDE\RIBOFLAVIN 5^-PHOSPHATE SODIUM\THIA
     Dosage: UNK
  21. VITAMIN C [Concomitant]
     Active Substance: ASCORBIC ACID
     Dosage: 1000 MG
  22. PRAVASTATIN SODIUM [Concomitant]
     Active Substance: PRAVASTATIN SODIUM
     Dosage: 10 MG
  23. OXYCODONE HYDROCHLORIDE [Concomitant]
     Active Substance: OXYCODONE HYDROCHLORIDE
     Dosage: 10 MG
  24. VICODIN HP [Concomitant]
     Active Substance: ACETAMINOPHEN\HYDROCODONE BITARTRATE
     Dosage: UNK (10MG-300MG TABLET)
  25. MAGNESIUM [Concomitant]
     Active Substance: MAGNESIUM
     Dosage: 100 MG
  26. FIORICET [Concomitant]
     Active Substance: ACETAMINOPHEN\BUTALBITAL\CAFFEINE
     Dosage: UNK (50-300-40 CAPSULE)
  27. MAXALT [Concomitant]
     Active Substance: RIZATRIPTAN BENZOATE
     Dosage: 10 MG
  28. LETROZOLE [Concomitant]
     Active Substance: LETROZOLE
     Dosage: 2.5 MG
  29. MUCINEX [Concomitant]
     Active Substance: GUAIFENESIN
     Dosage: UNK
  30. ADVIL [Concomitant]
     Active Substance: IBUPROFEN
     Dosage: UNK
  31. XGEVA [Concomitant]
     Active Substance: DENOSUMAB
     Dosage: UNK
  32. WELCHOL [Concomitant]
     Active Substance: COLESEVELAM HYDROCHLORIDE
     Dosage: UNK
  33. SINEMET [Concomitant]
     Active Substance: CARBIDOPA\LEVODOPA
     Dosage: UNK
  34. ACETAMINOPHEN\HYDROCODONE [Concomitant]
     Active Substance: ACETAMINOPHEN\HYDROCODONE
     Dosage: UNK
  35. FOLIC ACID [Concomitant]
     Active Substance: FOLIC ACID
     Dosage: UNK
  36. IODINE [POTASSIUM IODIDE] [Concomitant]
     Dosage: UNK

REACTIONS (12)
  - Neuropathy peripheral [Unknown]
  - Neoplasm progression [Unknown]
  - Nausea [Unknown]
  - Alopecia [Unknown]
  - Throat irritation [Unknown]
  - Diarrhoea [Not Recovered/Not Resolved]
  - Decreased appetite [Unknown]
  - Fatigue [Unknown]
  - Muscle spasms [Not Recovered/Not Resolved]
  - Gastric disorder [Not Recovered/Not Resolved]
  - Oral candidiasis [Not Recovered/Not Resolved]
  - Blood test abnormal [Not Recovered/Not Resolved]
